FAERS Safety Report 16964513 (Version 2)
Quarter: 2019Q4

REPORT INFORMATION
  Report Type: Spontaneous
  Country: ES (occurrence: ES)
  Receive Date: 20191028
  Receipt Date: 20191125
  Transmission Date: 20200122
  Serious: Yes (Death, Other)
  Sender: FDA-Public Use
  Company Number: ES-ALEXION PHARMACEUTICALS INC.-A201916226

PATIENT
  Sex: Female

DRUGS (1)
  1. SOLIRIS [Suspect]
     Active Substance: ECULIZUMAB
     Indication: ATYPICAL HAEMOLYTIC URAEMIC SYNDROME
     Dosage: UNK
     Route: 065
     Dates: start: 201907

REACTIONS (2)
  - Death [Fatal]
  - Cerebrovascular accident [Unknown]
